FAERS Safety Report 23578841 (Version 3)
Quarter: 2024Q2

REPORT INFORMATION
  Report Type: Report from Study
  Country: MX (occurrence: None)
  Receive Date: 20240229
  Receipt Date: 20240508
  Transmission Date: 20240715
  Serious: Yes (Hospitalization, Other)
  Sender: FDA-Public Use
  Company Number: 2024A046573

PATIENT
  Age: 60 Year
  Sex: Female
  Weight: 94 kg

DRUGS (2)
  1. BUDESONIDE\FORMOTEROL FUMARATE DIHYDRATE [Suspect]
     Active Substance: BUDESONIDE\FORMOTEROL FUMARATE DIHYDRATE
     Indication: Asthma
     Dosage: DOSE AND FREQUENCY UNKNOWN
     Route: 055
     Dates: start: 2022, end: 2023
  2. BUDESONIDE\FORMOTEROL\GLYCOPYRRONIUM [Suspect]
     Active Substance: BUDESONIDE\FORMOTEROL\GLYCOPYRRONIUM
     Indication: Asthma
     Route: 055
     Dates: start: 202308

REACTIONS (46)
  - Dyspnoea [Recovering/Resolving]
  - Illness [Recovering/Resolving]
  - Asthma [Recovering/Resolving]
  - Choking [Recovering/Resolving]
  - Haemorrhage [Unknown]
  - COVID-19 [Unknown]
  - Agitation [Recovering/Resolving]
  - Swelling [Unknown]
  - Fall [Recovered/Resolved with Sequelae]
  - Peripheral swelling [Unknown]
  - Vascular pain [Recovered/Resolved]
  - Limb injury [Unknown]
  - Pain [Unknown]
  - Hepatic failure [Recovering/Resolving]
  - Diabetic neuropathy [Unknown]
  - Feeling abnormal [Unknown]
  - Bone disorder [Unknown]
  - Arthropathy [Unknown]
  - Bone pain [Unknown]
  - Tendon disorder [Unknown]
  - Sleep disorder due to general medical condition, insomnia type [Unknown]
  - Hypertension [Unknown]
  - Blood glucose fluctuation [Unknown]
  - Cystitis [Recovered/Resolved]
  - Infection [Not Recovered/Not Resolved]
  - Chromaturia [Not Recovered/Not Resolved]
  - Emotional distress [Unknown]
  - Decreased activity [Unknown]
  - Off label use [Unknown]
  - Tachycardia [Unknown]
  - Arthralgia [Unknown]
  - Osteoarthritis [Unknown]
  - Blood cholesterol increased [Unknown]
  - Anxiety [Unknown]
  - Depression [Unknown]
  - Tremor [Unknown]
  - Crying [Unknown]
  - Salivary hypersecretion [Unknown]
  - Nausea [Recovering/Resolving]
  - Inability to afford medication [Unknown]
  - Headache [Not Recovered/Not Resolved]
  - Angina pectoris [Unknown]
  - Breath sounds abnormal [Not Recovered/Not Resolved]
  - Productive cough [Recovering/Resolving]
  - Cough [Recovering/Resolving]
  - Back pain [Unknown]

NARRATIVE: CASE EVENT DATE: 20200101
